FAERS Safety Report 9975970 (Version 1)
Quarter: 2014Q1

REPORT INFORMATION
  Report Type: Spontaneous
  Country: US (occurrence: US)
  Receive Date: 20140306
  Receipt Date: 20140306
  Transmission Date: 20141002
  Serious: No
  Sender: FDA-Public Use
  Company Number: US-PFIZER INC-2014063648

PATIENT
  Age: 46 Year
  Sex: Male
  Weight: 91.61 kg

DRUGS (1)
  1. LYRICA [Suspect]
     Indication: NEUROPATHY PERIPHERAL
     Dosage: 75 MG, 2X/DAY
     Route: 048
     Dates: start: 2013, end: 201402

REACTIONS (6)
  - Withdrawal syndrome [Unknown]
  - Diarrhoea [Unknown]
  - Muscle spasms [Unknown]
  - Hypoaesthesia [Unknown]
  - Burning sensation [Unknown]
  - Pain [Unknown]
